FAERS Safety Report 8977733 (Version 3)
Quarter: 2013Q1

REPORT INFORMATION
  Report Type: Spontaneous
  Country: US (occurrence: US)
  Receive Date: 20121220
  Receipt Date: 20130221
  Transmission Date: 20140127
  Serious: No
  Sender: FDA-Public Use
  Company Number: US-ASTRAZENECA-2012SE92900

PATIENT
  Age: 59 Year
  Sex: Male

DRUGS (4)
  1. CRESTOR [Suspect]
     Indication: LOW DENSITY LIPOPROTEIN INCREASED
     Route: 048
     Dates: start: 2005, end: 20121207
  2. CRESTOR [Suspect]
     Indication: LOW DENSITY LIPOPROTEIN INCREASED
     Route: 048
  3. NIASPAN [Concomitant]
     Indication: BLOOD CHOLESTEROL INCREASED
  4. NIACIN [Concomitant]

REACTIONS (5)
  - Back disorder [Unknown]
  - Back pain [Unknown]
  - Arthralgia [Unknown]
  - Arthralgia [Unknown]
  - Myalgia [Unknown]
